FAERS Safety Report 7067611 (Version 4)
Quarter: 2013Q3

REPORT INFORMATION
  Report Type: Report from Study
  Country: IT (occurrence: IT)
  Receive Date: 20090730
  Receipt Date: 20130816
  Transmission Date: 20140515
  Serious: Yes (Hospitalization)
  Sender: FDA-Public Use
  Company Number: PHHY2009IT18527

PATIENT
  Age: 53 Year
  Sex: Male
  Weight: 106 kg

DRUGS (20)
  1. CERTICAN [Suspect]
     Indication: RENAL TRANSPLANT
     Dosage: 1.25 MG/DAY
     Route: 048
     Dates: start: 20051216, end: 20090518
  2. CERTICAN [Suspect]
     Indication: IMMUNOSUPPRESSION
     Dosage: 1MG/DAY
     Route: 048
     Dates: start: 20090603
  3. AZATHIOPRINE [Concomitant]
     Indication: RENAL TRANSPLANT
     Dosage: 25 MG/DAY
     Dates: start: 20070123
  4. PYRIDOXINE [Concomitant]
  5. METOPROLOL [Concomitant]
     Dosage: 50 MG, UNK
     Route: 048
  6. OMEPRAZOLE [Concomitant]
     Dosage: 20 MG, UNK
     Route: 048
  7. CYANOCOBALAMIN [Concomitant]
  8. CALCIUM FOLINATE [Concomitant]
     Dosage: 7.5 MG, UNK
     Route: 048
  9. RAMIPRIL [Concomitant]
     Dosage: 2.5 MG, UNK
     Route: 048
  10. POTASSIUM CANRENOATE [Concomitant]
     Dosage: 100 MG, UNK
     Route: 048
  11. NITROGLYCERIN ^A.L.^ [Concomitant]
     Dosage: 10 MG, UNK
     Route: 062
  12. EPOETIN BETA [Concomitant]
     Dosage: 10 U/L
  13. SIMVASTATIN [Concomitant]
     Route: 048
  14. INSULIN [Concomitant]
  15. CALCITRIOL [Concomitant]
  16. ESKIM [Concomitant]
     Dosage: 2000MG DAILY
     Route: 048
  17. LASIX [Concomitant]
     Dosage: 125 MG, UNK
     Route: 048
  18. CARDIOASPIRIN [Concomitant]
     Dosage: 100 MG, 1 POSOLOGICAL UNIT
     Route: 048
  19. SANDIMMUN NEORAL [Concomitant]
     Dosage: 180 MG, UNK
     Route: 048
  20. CICLOSPORINE [Concomitant]
     Indication: IMMUNOSUPPRESSION
     Dosage: 90 MG, BID
     Dates: start: 20050116

REACTIONS (5)
  - Pancytopenia [Recovered/Resolved]
  - Hyperuricaemia [Recovered/Resolved]
  - Chest pain [Recovered/Resolved]
  - Erythema infectiosum [Recovered/Resolved]
  - Pyrexia [Recovered/Resolved]
